FAERS Safety Report 9730502 (Version 2)
Quarter: 2013Q4

REPORT INFORMATION
  Report Type: Spontaneous
  Country: BR (occurrence: BR)
  Receive Date: 20131202
  Receipt Date: 20131202
  Transmission Date: 20140711
  Serious: Yes (Hospitalization)
  Sender: FDA-Public Use
  Company Number: BR-BRACCO-000157

PATIENT
  Age: 53 Year
  Sex: Male
  Weight: 112 kg

DRUGS (8)
  1. ATENSINA [Concomitant]
     Indication: HYPERTENSION
  2. ANGIOTENSIN II ANTAGONISTS, PLAIN [Concomitant]
     Indication: ANGIOTENSIN CONVERTING ENZYME INHIBITOR FOETOPATHY
  3. INSULIN NPH [Concomitant]
  4. GLIMEPIRIDA [Concomitant]
     Indication: DIABETES MELLITUS
  5. NEBILET [Concomitant]
  6. NATRILIX [Concomitant]
     Indication: DIURETIC THERAPY
  7. NATRILIX [Concomitant]
     Indication: HYPERTENSION
  8. IOPAMIRON [Suspect]
     Indication: CATHETERISATION CARDIAC
     Dosage: 100 ML FROM 2 VIALS OF C2P366A (EXP: 31-OCT-2014) AND 50 ML FROM C3P352F (EXP: 28-FEB-2015)
     Route: 013
     Dates: start: 20131107, end: 20131107

REACTIONS (5)
  - Cerebrovascular accident [Recovering/Resolving]
  - Aphasia [Recovering/Resolving]
  - Confusional state [Recovering/Resolving]
  - Dizziness [Unknown]
  - Amnesia [Unknown]
